FAERS Safety Report 7787607-9 (Version None)
Quarter: 2011Q3

REPORT INFORMATION
  Report Type: 
  Country: None (occurrence: None)
  Receive Date: 20110929
  Receipt Date: 20100616
  Transmission Date: 20111222
  Serious: Yes (Hospitalization)
  Sender: FDA-Public Use
  Company Number: US-BAYER-201013241NA

PATIENT
  Age: 42 Year
  Sex: Female
  Weight: 57 kg

DRUGS (6)
  1. FLAGYL [Concomitant]
     Dosage: 500 MG, QID
  2. LEVAQUIN [Concomitant]
     Dosage: 500 MG, QD
     Dates: start: 20070130
  3. ASPIRIN [Concomitant]
  4. YAZ [Suspect]
     Dosage: UNK
     Dates: start: 20061001, end: 20070101
  5. CIPROFLOXACIN [Concomitant]
     Dosage: 500 MG, BID
  6. FLUCONAZOLE [Concomitant]
     Dosage: 150 MG, UNK
     Dates: start: 20061207

REACTIONS (3)
  - THROMBOSIS [None]
  - COLITIS [None]
  - MENTAL DISORDER [None]
